FAERS Safety Report 5977417-7 (Version None)
Quarter: 2008Q4

REPORT INFORMATION
  Report Type: 
  Country: None (occurrence: None)
  Receive Date: 20081201
  Receipt Date: 20081201
  Transmission Date: 20090506
  Serious: Yes (Other)
  Sender: FDA-Public Use
  Company Number: None

PATIENT
  Age: 63 Year

DRUGS (1)
  1. COZAAR [Suspect]
     Indication: HYPERTENSION
     Dosage: 1 DAILY PO
     Dates: start: 20081015, end: 20081128

REACTIONS (5)
  - CHEST PAIN [None]
  - DIZZINESS [None]
  - FLANK PAIN [None]
  - MALAISE [None]
  - NAUSEA [None]
